FAERS Safety Report 11552379 (Version 1)
Quarter: 2015Q3

REPORT INFORMATION
  Report Type: Spontaneous
  Country: US (occurrence: US)
  Receive Date: 20150925
  Receipt Date: 20150925
  Transmission Date: 20151125
  Serious: No
  Sender: FDA-Public Use
  Company Number: US-SUN PHARMACEUTICAL INDUSTRIES LTD-2015US-100668

PATIENT
  Sex: Male

DRUGS (1)
  1. TESTOSTERONE. [Suspect]
     Active Substance: TESTOSTERONE
     Indication: BLOOD TESTOSTERONE DECREASED
     Dosage: 1 ML, 3/WEEK
     Route: 030
     Dates: start: 20150107

REACTIONS (16)
  - Myalgia [Unknown]
  - Headache [Unknown]
  - Respiratory rate increased [Unknown]
  - Muscle swelling [Recovering/Resolving]
  - Application site reaction [Unknown]
  - Malaise [Unknown]
  - Pain in extremity [Unknown]
  - Night sweats [Recovered/Resolved]
  - Mobility decreased [Unknown]
  - Erythema [Unknown]
  - Blood pressure increased [Recovering/Resolving]
  - Neck pain [Unknown]
  - Feeling hot [Unknown]
  - Insomnia [Unknown]
  - Tinnitus [Not Recovered/Not Resolved]
  - Heart rate increased [Recovered/Resolved]

NARRATIVE: CASE EVENT DATE: 201501
